FAERS Safety Report 18702974 (Version 8)
Quarter: 2021Q3

REPORT INFORMATION
  Report Type: Spontaneous
  Country: US (occurrence: US)
  Receive Date: 20210105
  Receipt Date: 20210813
  Transmission Date: 20211014
  Serious: Yes (Disabling, Other)
  Sender: FDA-Public Use
  Company Number: US-BIOMARINAP-US-2020-133932

PATIENT
  Age: 40 Year
  Sex: Female

DRUGS (2)
  1. ALDURAZYME [Suspect]
     Active Substance: LARONIDASE
     Indication: MUCOPOLYSACCHARIDOSIS I
     Dosage: 32 MILLIGRAM, QW
     Route: 041
     Dates: start: 20050623
  2. ALDURAZYME [Suspect]
     Active Substance: LARONIDASE
     Dosage: 26.1 MILLIGRAM, QW
     Route: 041

REACTIONS (15)
  - Intracardiac thrombus [Unknown]
  - Hypoaesthesia [Unknown]
  - Fatigue [Unknown]
  - Impaired work ability [Unknown]
  - Pain in extremity [Unknown]
  - Anal incontinence [Not Recovered/Not Resolved]
  - Malaise [Recovering/Resolving]
  - Limb operation [Unknown]
  - Disease progression [Unknown]
  - Urine odour abnormal [Unknown]
  - Fall [Recovering/Resolving]
  - Fatigue [Not Recovered/Not Resolved]
  - Feeding disorder [Recovering/Resolving]
  - Pain in extremity [Recovering/Resolving]
  - Therapy interrupted [Unknown]

NARRATIVE: CASE EVENT DATE: 202103
